FAERS Safety Report 9133942 (Version 1)
Quarter: 2013Q1

REPORT INFORMATION
  Report Type: Spontaneous
  Country: US (occurrence: US)
  Receive Date: 20130303
  Receipt Date: 20130303
  Transmission Date: 20140127
  Serious: Yes (Life-Threatening)
  Sender: FDA-Public Use
  Company Number: US-009507513-1303USA000059

PATIENT
  Age: 50 Year
  Sex: Male

DRUGS (5)
  1. JANUMET XR [Suspect]
     Indication: DIABETES MELLITUS
     Dosage: UNK
     Route: 048
     Dates: start: 20130130, end: 20130221
  2. ATORVASTATIN [Concomitant]
  3. LISINOPRIL [Concomitant]
  4. OMEPRAZOLE [Concomitant]
  5. INSULIN GLARGINE [Concomitant]

REACTIONS (1)
  - Pancreatitis [Recovered/Resolved]
